FAERS Safety Report 8401601 (Version 4)
Quarter: 2013Q2

REPORT INFORMATION
  Report Type: Spontaneous
  Country: US (occurrence: US)
  Receive Date: 20120210
  Receipt Date: 20130611
  Transmission Date: 20140414
  Serious: Yes (Hospitalization, Other)
  Sender: FDA-Public Use
  Company Number: US-US-EMD SERONO, INC.-7111722

PATIENT
  Sex: Female

DRUGS (4)
  1. REBIF [Suspect]
     Indication: MULTIPLE SCLEROSIS
     Route: 058
     Dates: start: 20101115, end: 201108
  2. REBIF [Suspect]
     Dates: start: 20120425, end: 20120817
  3. SEROQUEL                           /01270901/ [Concomitant]
     Indication: BIPOLAR DISORDER
  4. LAMICTAL [Concomitant]
     Indication: BIPOLAR DISORDER

REACTIONS (6)
  - Colon cancer [Recovered/Resolved]
  - Retinal ischaemia [Unknown]
  - Spinal fracture [Not Recovered/Not Resolved]
  - Anxiety [Not Recovered/Not Resolved]
  - Fall [Not Recovered/Not Resolved]
  - Depression [Not Recovered/Not Resolved]
